FAERS Safety Report 7394106-5 (Version None)
Quarter: 2011Q2

REPORT INFORMATION
  Report Type: 
  Country: None (occurrence: None)
  Receive Date: 20110405
  Receipt Date: 20110331
  Transmission Date: 20111010
  Serious: No
  Sender: FDA-Public Use
  Company Number: US-PFIZER INC-US-WYE-H15189310

PATIENT
  Sex: Female
  Weight: 63.5 kg

DRUGS (2)
  1. EFFEXOR [Suspect]
     Indication: OBSESSIVE-COMPULSIVE DISORDER
     Dosage: 37.5 MG, 1X/DAY
     Route: 065
     Dates: start: 20040101
  2. EFFEXOR [Suspect]
     Dosage: RESUMED ON AN UNSPECIFIED DATE, THEN TAPERED IN ATTEMPTUES TO DISCONTIN

REACTIONS (2)
  - IRRITABILITY [None]
  - ANGER [None]
